FAERS Safety Report 16757626 (Version 1)
Quarter: 2019Q3

REPORT INFORMATION
  Report Type: Spontaneous
  Country: HK (occurrence: HK)
  Receive Date: 20190830
  Receipt Date: 20190830
  Transmission Date: 20191005
  Serious: Yes (Life-Threatening, Hospitalization, Other)
  Sender: FDA-Public Use
  Company Number: HK-ACCORD-153219

PATIENT
  Age: 5 Year
  Sex: Female

DRUGS (5)
  1. ANAKINRA [Concomitant]
     Active Substance: ANAKINRA
     Indication: STILL^S DISEASE
  2. ETANERCEPT [Concomitant]
     Active Substance: ETANERCEPT
     Indication: STILL^S DISEASE
  3. PREDNISOLONE. [Concomitant]
     Active Substance: PREDNISOLONE
     Indication: STILL^S DISEASE
     Dosage: LOW DOSE
  4. TOCILIZUMAB. [Concomitant]
     Active Substance: TOCILIZUMAB
     Indication: STILL^S DISEASE
  5. METHOTREXATE. [Suspect]
     Active Substance: METHOTREXATE
     Indication: STILL^S DISEASE

REACTIONS (6)
  - Pulmonary hypertension [Unknown]
  - Interstitial lung disease [Unknown]
  - Cor pulmonale acute [Unknown]
  - Bronchiectasis [Unknown]
  - Cardiac failure acute [Unknown]
  - Pulmonary fibrosis [Unknown]
